FAERS Safety Report 13172595 (Version 1)
Quarter: 2017Q1

REPORT INFORMATION
  Report Type: Report from Study
  Country: IL (occurrence: IL)
  Receive Date: 20170131
  Receipt Date: 20170131
  Transmission Date: 20170428
  Serious: Yes (Death, Hospitalization)
  Sender: FDA-Public Use
  Company Number: IL-ACTELION-A-NJ2017-149291

PATIENT
  Age: 82 Year
  Sex: Female

DRUGS (1)
  1. VENTAVIS [Suspect]
     Active Substance: ILOPROST
     Indication: PULMONARY HYPERTENSION
     Dosage: UNK
     Route: 055
     Dates: start: 20090901

REACTIONS (3)
  - Fall [Unknown]
  - Death [Fatal]
  - Hand fracture [Unknown]

NARRATIVE: CASE EVENT DATE: 2016
